FAERS Safety Report 5659740-9 (Version None)
Quarter: 2008Q1

REPORT INFORMATION
  Report Type: 
  Country: None (occurrence: None)
  Receive Date: 20080311
  Receipt Date: 20070702
  Transmission Date: 20080703
  Serious: No
  Sender: FDA-Public Use
  Company Number: US-BAYER-200712122BCC

PATIENT
  Age: 48 Year
  Sex: Female
  Weight: 64 kg

DRUGS (4)
  1. MIDOL EXTENDED RELIEF CAPLETS [Suspect]
     Indication: DYSMENORRHOEA
     Dosage: UNIT DOSE: 220 MG
     Route: 048
     Dates: start: 20070501
  2. MIDOL EXTENDED RELIEF CAPLETS [Suspect]
     Dosage: AS USED: 220 MG  UNIT DOSE: 220 MG
     Route: 048
     Dates: start: 20070701, end: 20070702
  3. BLOOD PRESSURE MEDICATION [Concomitant]
  4. PRILOSEC [Concomitant]

REACTIONS (1)
  - DYSMENORRHOEA [None]
